FAERS Safety Report 6787617-4 (Version None)
Quarter: 2010Q2

REPORT INFORMATION
  Report Type: 
  Country: None (occurrence: None)
  Receive Date: 20100623
  Receipt Date: 20040312
  Transmission Date: 20101027
  Serious: Yes (Other)
  Sender: FDA-Public Use
  Company Number: US-PFIZER INC-2007056762

PATIENT
  Sex: Female

DRUGS (5)
  1. DEPO-PROVERA SUSPENSION/INJ [Suspect]
     Indication: CONTRACEPTION
     Dosage: FIRST INJECTION
     Dates: start: 20010101, end: 20010101
  2. DEPO-PROVERA SUSPENSION/INJ [Suspect]
     Dates: start: 20030422, end: 20030422
  3. DEPO-PROVERA SUSPENSION/INJ [Suspect]
     Dates: start: 20030715, end: 20030715
  4. DEPO-PROVERA SUSPENSION/INJ [Suspect]
     Dates: start: 20031007, end: 20031007
  5. DEPO-PROVERA SUSPENSION/INJ [Suspect]
     Dosage: LAST INJECTION
     Dates: start: 20031223, end: 20031223

REACTIONS (2)
  - DRUG INEFFECTIVE [None]
  - UNINTENDED PREGNANCY [None]
